FAERS Safety Report 20053718 (Version 1)
Quarter: 2021Q4

REPORT INFORMATION
  Report Type: Spontaneous
  Country: US (occurrence: US)
  Receive Date: 20211110
  Receipt Date: 20211110
  Transmission Date: 20220303
  Serious: No
  Sender: FDA-Public Use
  Company Number: US-PERRIGO-20US016109

PATIENT
  Sex: Female
  Weight: 61.224 kg

DRUGS (5)
  1. FAMOTIDINE [Suspect]
     Active Substance: FAMOTIDINE
     Indication: Dyspepsia
     Dosage: 20 MG, NIGHTLY
     Route: 048
     Dates: start: 2010, end: 202009
  2. CALCIUM [Concomitant]
     Active Substance: CALCIUM
     Indication: Supplementation therapy
     Dosage: 2 AT LUNCH
     Route: 065
     Dates: start: 202005
  3. PROBIOTICS NOS [Concomitant]
     Active Substance: PROBIOTICS NOS
     Indication: Constipation
     Dosage: 20000, 2 AT BEDTIME
     Route: 065
     Dates: start: 2018
  4. PROZAC [Concomitant]
     Active Substance: FLUOXETINE HYDROCHLORIDE
     Indication: Depression
     Dosage: 20 MG, AT BEDTIME
     Route: 065
     Dates: start: 2015
  5. ANASTROZOLE [Concomitant]
     Active Substance: ANASTROZOLE
     Indication: Hormone level abnormal
     Dosage: UNK
     Route: 065
     Dates: start: 202005

REACTIONS (1)
  - Incorrect product administration duration [Recovered/Resolved]

NARRATIVE: CASE EVENT DATE: 20100101
